FAERS Safety Report 5038092-1 (Version None)
Quarter: 2006Q2

REPORT INFORMATION
  Report Type: 
  Country: None (occurrence: None)
  Receive Date: 20060622
  Receipt Date: 20060607
  Transmission Date: 20061013
  Serious: Yes (Other)
  Sender: FDA-Public Use
  Company Number: 226333

PATIENT
  Age: 48 Year
  Sex: Female
  Weight: 56 kg

DRUGS (7)
  1. AVASTIN [Suspect]
     Indication: COLORECTAL CANCER METASTATIC
     Dosage: 280 MG, Q2W, INTRAVENOUS
     Route: 042
     Dates: start: 20051115, end: 20060115
  2. NOVALGIN (DIPYRONE) [Concomitant]
  3. TRAMADOL HCL [Concomitant]
  4. AQUAPHOR (CERESIN, MINERAL OIL, PETROLATUM, WOOL ALCOHOL) [Concomitant]
  5. CIPROFLOXACIN [Concomitant]
  6. METHYLPREDNISOLONE [Concomitant]
  7. MIRTAZAPINE [Concomitant]

REACTIONS (2)
  - ANKLE FRACTURE [None]
  - TENDON RUPTURE [None]
